FAERS Safety Report 5043533-X (Version None)
Quarter: 2006Q2

REPORT INFORMATION
  Report Type: 
  Country: None (occurrence: None)
  Receive Date: 20060601
  Receipt Date: 20060115
  Transmission Date: 20061013
  Serious: No
  Sender: FDA-Public Use
  Company Number: 2006PV007063

PATIENT
  Age: 44 Year
  Sex: Female
  Weight: 104.3273 kg

DRUGS (4)
  1. BYETTA [Suspect]
     Indication: DIABETES MELLITUS NON-INSULIN-DEPENDENT
     Dosage: SEE IMAGE
     Route: 058
     Dates: start: 20050901, end: 20051101
  2. BYETTA [Suspect]
     Indication: DIABETES MELLITUS NON-INSULIN-DEPENDENT
     Dosage: SEE IMAGE
     Route: 058
     Dates: start: 20051101
  3. ASPIRIN [Concomitant]
  4. GLUCOPHAGE [Concomitant]

REACTIONS (2)
  - INJECTION SITE BRUISING [None]
  - INJECTION SITE PAIN [None]
